FAERS Safety Report 12786613 (Version 1)
Quarter: 2016Q3

REPORT INFORMATION
  Report Type: Spontaneous
  Country: TW (occurrence: TW)
  Receive Date: 20160927
  Receipt Date: 20160927
  Transmission Date: 20161109
  Serious: Yes (Hospitalization)
  Sender: FDA-Public Use
  Company Number: TW-B.I. PHARMACEUTICALS,INC./RIDGEFIELD-2016-BI-61718BI

PATIENT
  Age: 68 Year
  Sex: Female

DRUGS (1)
  1. GILOTRIF [Suspect]
     Active Substance: AFATINIB
     Indication: NON-SMALL CELL LUNG CANCER
     Dosage: 40 MG
     Route: 048
     Dates: start: 20150320

REACTIONS (4)
  - Acne [Recovered/Resolved]
  - Diarrhoea [Recovered/Resolved]
  - Metastases to meninges [Not Recovered/Not Resolved]
  - Paronychia [Recovered/Resolved]
